FAERS Safety Report 7302624-0 (Version None)
Quarter: 2011Q1

REPORT INFORMATION
  Report Type: 
  Country: None (occurrence: None)
  Receive Date: 20110218
  Receipt Date: 20110203
  Transmission Date: 20110831
  Serious: Yes (Other)
  Sender: FDA-Public Use
  Company Number: AR-GENENTECH-313696

PATIENT
  Age: 60 Year
  Sex: Male

DRUGS (2)
  1. XOLAIR [Suspect]
     Indication: ASTHMA
     Dosage: 225 MG, Q15D
  2. DIURETIC NOS [Concomitant]
     Indication: HYPERTENSION

REACTIONS (5)
  - HYPERTENSION [None]
  - PERICARDIAL EFFUSION [None]
  - PALPABLE PURPURA [None]
  - POSTOPERATIVE WOUND INFECTION [None]
  - CARDIAC FAILURE CONGESTIVE [None]
